FAERS Safety Report 8118935-5 (Version None)
Quarter: 2012Q1

REPORT INFORMATION
  Report Type: 
  Country: None (occurrence: None)
  Receive Date: 20120207
  Receipt Date: 20120130
  Transmission Date: 20120608
  Serious: Yes (Other)
  Sender: FDA-Public Use
  Company Number: DE-B.I. PHARMACEUTICALS,INC./RIDGEFIELD-2011-DE-06813DE

PATIENT
  Sex: Female
  Weight: 55 kg

DRUGS (14)
  1. ATACAND [Concomitant]
     Dosage: 1 ANZ
  2. PRADAXA [Suspect]
     Indication: ARRHYTHMIA
     Dosage: 220 MG
     Route: 048
     Dates: start: 20111019, end: 20111121
  3. PRADAXA [Suspect]
     Indication: ATRIAL FIBRILLATION
  4. LERCANIDIPINE [Concomitant]
     Dosage: 20 MG
  5. EZETIMIBE [Concomitant]
     Dosage: 1 ANZ
  6. NOVODIGAL MITE [Concomitant]
     Dosage: 1 ANZ
  7. URSO FALK [Concomitant]
     Dosage: 750 MG
  8. METFORMIN AL [Concomitant]
     Dosage: 0.5 ANZ
  9. PANTOPRAZOL HEXAL [Concomitant]
     Dosage: 1 ANZ
  10. PREDNIHEXAL [Concomitant]
     Dosage: 5 MG
  11. CREON [Concomitant]
     Dosage: 4 ANZ
  12. ACTRAPHANE [Concomitant]
     Dosage: 26IE IN THE MORNING, 12 IE IN THE EVENING, EVENINGS 150 200 12IE UP TO 250 14 IE
  13. TORASEMID AL [Concomitant]
     Dosage: 10 MG
  14. NEBIVOLOL STADA [Concomitant]
     Dosage: 5 MG

REACTIONS (2)
  - MOUTH HAEMORRHAGE [None]
  - LIVER FUNCTION TEST ABNORMAL [None]
